FAERS Safety Report 8680061 (Version 2)
Quarter: 2013Q3

REPORT INFORMATION
  Report Type: Report from Study
  Country: DE (occurrence: DE)
  Receive Date: 20120724
  Receipt Date: 20130731
  Transmission Date: 20140515
  Serious: Yes (Hospitalization)
  Sender: FDA-Public Use
  Company Number: DE-ROCHE-1068766

PATIENT
  Age: 58 Year
  Sex: Female
  Weight: 59 kg

DRUGS (20)
  1. TRASTUZUMAB [Suspect]
     Indication: BREAST CANCER
     Dosage: LAST DOSE ADMINISTERED ON 19/APR/2012,
     Route: 042
     Dates: start: 20120419, end: 20120510
  2. TRASTUZUMAB [Suspect]
     Dosage: LAST DOSE (CYCLE 4) PRIOR TO SAE 05/JUL/2012
     Route: 042
     Dates: start: 20120516
  3. LAPATINIB [Suspect]
     Indication: BREAST CANCER
     Dosage: LAST DOSE ADMINISTERED ON 8/MAY/2012
     Route: 048
     Dates: start: 20120419, end: 20120509
  4. LAPATINIB [Suspect]
     Dosage: LAST DOSE PRIOR TO SAE 500 MG ON 12/JUL/2012
     Route: 048
     Dates: start: 20120518
  5. PACLITAXEL [Suspect]
     Indication: BREAST CANCER
     Dosage: LAST DOSE PRIOR TO ADVERSE EVENT 03 MAY 2012
     Route: 042
     Dates: start: 20120419, end: 20120510
  6. PACLITAXEL [Suspect]
     Dosage: DATE OF LAST DOSE PRIOR TO SAE 99.6 MG ON 12/JUL/2012
     Route: 042
     Dates: start: 20120516
  7. DOXORUBICIN [Suspect]
     Indication: BREAST CANCER
     Dosage: LAST DOSE PRIOR TO ADVERSE EVENT: 03 MAY 2012
     Route: 042
     Dates: start: 20120419, end: 20120510
  8. DOXORUBICIN [Suspect]
     Dosage: LAST DOSE PRIOR TO SAE 24.9 MG ON 12/JUL/2012
     Route: 042
     Dates: start: 20120516
  9. NOVALGIN [Concomitant]
     Dosage: AS NEEDED.
     Route: 065
     Dates: start: 1993
  10. JUTABIS [Concomitant]
     Route: 065
     Dates: start: 2006
  11. PANTOPRAZOL [Concomitant]
     Route: 065
     Dates: start: 1982
  12. MAALOXAN [Concomitant]
     Route: 065
     Dates: start: 20120427, end: 20120823
  13. SELENIUM [Concomitant]
     Route: 065
     Dates: start: 20120430
  14. ORTHOMOL PRODUCT NOS [Concomitant]
     Route: 065
     Dates: start: 20120430
  15. MILK THISTLE [Concomitant]
     Route: 065
     Dates: start: 20120430
  16. LOPERAMIDE [Concomitant]
     Route: 065
     Dates: start: 20120422, end: 20120502
  17. BETAISODONA [Concomitant]
     Route: 065
     Dates: start: 20120528, end: 20120831
  18. ONDANSETRON [Concomitant]
     Route: 065
     Dates: start: 20120509, end: 20120831
  19. SALVIATHYMOL [Concomitant]
     Dosage: AS NEEDED
     Route: 065
     Dates: start: 20120621, end: 20120831
  20. OPIUM [Concomitant]
     Route: 065
     Dates: start: 20120513, end: 20120806

REACTIONS (2)
  - General physical health deterioration [Recovered/Resolved]
  - Paraesthesia oral [Recovered/Resolved]
